FAERS Safety Report 9143909 (Version 1)
Quarter: 2013Q1

REPORT INFORMATION
  Report Type: Spontaneous
  Country: US (occurrence: US)
  Receive Date: 20130306
  Receipt Date: 20130306
  Transmission Date: 20140127
  Serious: No
  Sender: FDA-Public Use
  Company Number: US-PFIZER INC-2013078393

PATIENT
  Age: 64 Year
  Sex: Male
  Weight: 86.17 kg

DRUGS (5)
  1. LYRICA [Suspect]
     Indication: NEUROPATHY PERIPHERAL
     Dosage: 75 MG, 3X/DAY
     Dates: start: 2013
  2. LYRICA [Suspect]
     Indication: NEURALGIA
     Dosage: 25 MG, AT BEDTIME
  3. LYRICA [Suspect]
     Dosage: 75 MG, 1X/DAY
     Route: 048
     Dates: start: 201303, end: 201303
  4. TENORMIN [Concomitant]
     Indication: HYPERTENSION
     Dosage: 25 MG, 2X/DAY
  5. OXYCODONE [Concomitant]
     Indication: PAIN
     Dosage: 150 MG (FIVE TABLETS OF 30MG IN A DAY )

REACTIONS (7)
  - Blood cholesterol increased [Unknown]
  - Dry mouth [Recovered/Resolved]
  - Swollen tongue [Recovered/Resolved]
  - Tongue dry [Recovered/Resolved]
  - Tongue disorder [Recovered/Resolved]
  - Glossitis [Recovered/Resolved]
  - Nausea [Not Recovered/Not Resolved]
